FAERS Safety Report 20134921 (Version 1)
Quarter: 2021Q4

REPORT INFORMATION
  Report Type: Spontaneous
  Country: GB (occurrence: None)
  Receive Date: 20211201
  Receipt Date: 20211201
  Transmission Date: 20220304
  Serious: Yes (Other)
  Sender: FDA-Public Use
  Company Number: 2021A848891

PATIENT
  Age: 1 Day
  Sex: Male
  Weight: 2.3 kg

DRUGS (7)
  1. OMEPRAZOLE [Suspect]
     Active Substance: OMEPRAZOLE
     Indication: Gastrooesophageal reflux disease
     Route: 063
     Dates: start: 20211101, end: 20211117
  2. BISOPROLOL [Suspect]
     Active Substance: BISOPROLOL
     Indication: Maternal hypertension affecting foetus
     Route: 063
     Dates: start: 20211101, end: 20211117
  3. CARBAMAZEPINE [Suspect]
     Active Substance: CARBAMAZEPINE
     Indication: Epilepsy
     Route: 063
     Dates: start: 20211101, end: 20211117
  4. FOLIC ACID [Suspect]
     Active Substance: FOLIC ACID
     Indication: Prophylaxis of neural tube defect
     Route: 063
     Dates: start: 20211101, end: 20211117
  5. NIFEDIPINE [Suspect]
     Active Substance: NIFEDIPINE
     Indication: Maternal hypertension affecting foetus
     Route: 063
     Dates: start: 20211101, end: 20211117
  6. TOCILIZUMAB [Suspect]
     Active Substance: TOCILIZUMAB
     Indication: Takayasu^s arteritis
     Route: 063
     Dates: start: 20211101, end: 20211117
  7. ASPIRIN [Suspect]
     Active Substance: ASPIRIN
     Route: 063
     Dates: start: 20211101, end: 20211117

REACTIONS (2)
  - Hypoglycaemia neonatal [Recovered/Resolved]
  - Exposure via breast milk [Not Recovered/Not Resolved]

NARRATIVE: CASE EVENT DATE: 20211101
